FAERS Safety Report 22090143 (Version 1)
Quarter: 2023Q1

REPORT INFORMATION
  Report Type: Spontaneous
  Country: US (occurrence: None)
  Receive Date: 20230313
  Receipt Date: 20230313
  Transmission Date: 20230417
  Serious: Yes (Other)
  Sender: FDA-Public Use
  Company Number: None

PATIENT
  Age: 59 Year
  Sex: Female
  Weight: 67.5 kg

DRUGS (1)
  1. CIMZIA [Suspect]
     Active Substance: CERTOLIZUMAB PEGOL
     Dates: start: 20230211, end: 20230211

REACTIONS (7)
  - Malaise [None]
  - Urticaria [None]
  - Nausea [None]
  - Dizziness [None]
  - Hyperhidrosis [None]
  - Burning sensation [None]
  - Dysstasia [None]

NARRATIVE: CASE EVENT DATE: 20230211
